FAERS Safety Report 14038849 (Version 1)
Quarter: 2017Q4

REPORT INFORMATION
  Report Type: Spontaneous
  Country: IR (occurrence: IR)
  Receive Date: 20171004
  Receipt Date: 20171004
  Transmission Date: 20180321
  Serious: Yes (Other)
  Sender: FDA-Public Use
  Company Number: IR-BIOVITRUM-2017IR0895

PATIENT
  Age: 3 Year
  Sex: Male

DRUGS (2)
  1. ORFADIN [Suspect]
     Active Substance: NITISINONE
     Indication: TYROSINAEMIA
     Dosage: 1 MG/KG/DAY
  2. ORFADIN [Suspect]
     Active Substance: NITISINONE
     Dosage: 2 MG/KG/DAY

REACTIONS (3)
  - Diaphragmatic paralysis [Recovered/Resolved with Sequelae]
  - Kidney enlargement [Recovered/Resolved with Sequelae]
  - Hepatic neoplasm [Recovered/Resolved with Sequelae]
